FAERS Safety Report 9703888 (Version 1)
Quarter: 2013Q4

REPORT INFORMATION
  Report Type: Report from Study
  Country: US (occurrence: US)
  Receive Date: 20131122
  Receipt Date: 20131122
  Transmission Date: 20140711
  Serious: Yes (Other)
  Sender: FDA-Public Use
  Company Number: US-ROCHE-1306914

PATIENT
  Sex: Female

DRUGS (10)
  1. XOLAIR [Suspect]
     Indication: PRODUCT USED FOR UNKNOWN INDICATION
     Route: 065
  2. AZATHIOPRIN [Concomitant]
  3. ADVAIR DISKUS [Concomitant]
     Dosage: FOR 30 DAYS
     Route: 055
     Dates: start: 20130719, end: 20130815
  4. ALBUTEROL SULFATE [Concomitant]
     Dosage: 90MCG/ACTUATION
     Route: 055
  5. NEURONTIN (UNITED STATES) [Concomitant]
     Route: 048
  6. REQUIP [Concomitant]
     Route: 065
  7. ZOLOFT [Concomitant]
     Route: 048
  8. TRAMADOL [Concomitant]
     Route: 065
  9. SINGULAR [Concomitant]
     Route: 065
  10. OMEPRAZOLE [Concomitant]
     Route: 048

REACTIONS (16)
  - Asthma [Unknown]
  - Cardiac disorder [Unknown]
  - Fatigue [Unknown]
  - Cough [Unknown]
  - Dyspnoea [Unknown]
  - Wheezing [Unknown]
  - Abdominal pain [Unknown]
  - Dyspnoea [Unknown]
  - Decreased activity [Unknown]
  - Upper respiratory tract infection [Unknown]
  - Rash [Unknown]
  - Pruritus [Unknown]
  - Rhinitis [Unknown]
  - Gastric disorder [Unknown]
  - Eczema [Unknown]
  - Gastric ulcer haemorrhage [Unknown]
